FAERS Safety Report 6223246-9 (Version None)
Quarter: 2009Q2

REPORT INFORMATION
  Report Type: 
  Country: None (occurrence: None)
  Receive Date: 20090611
  Receipt Date: 20090603
  Transmission Date: 20091009
  Serious: Yes (Other)
  Sender: FDA-Public Use
  Company Number: PHHO2009GB05411

PATIENT
  Sex: Male

DRUGS (4)
  1. CERTICAN [Suspect]
     Indication: INSULINOMA
     Dosage: 10 MG ALTERNATE DAY
  2. CERTICAN [Suspect]
     Dosage: 10 MG/DAY ALTERNATES WITH 5 MG/DAY
  3. INOSINE [Concomitant]
  4. TEMOZOLOMIDE [Suspect]
     Indication: CHEMOTHERAPY

REACTIONS (1)
  - BONE MARROW FAILURE [None]
